FAERS Safety Report 9547259 (Version 2)
Quarter: 2013Q4

REPORT INFORMATION
  Report Type: Report from Study
  Country: US (occurrence: US)
  Receive Date: 20130924
  Receipt Date: 20131002
  Transmission Date: 20140711
  Serious: Yes (Life-Threatening, Hospitalization, Disabling, Other)
  Sender: FDA-Public Use
  Company Number: US-ALEXION PHARMACEUTICALS INC.-A201302270

PATIENT
  Age: 19 Year
  Sex: Male

DRUGS (8)
  1. ECULIZUMAB [Suspect]
     Indication: HAEMOLYTIC URAEMIC SYNDROME
     Dosage: EVERY OTHER WEEK
     Route: 042
  2. LASIX [Concomitant]
     Dosage: UNK
  3. ATROVENT [Concomitant]
     Dosage: UNK
  4. ZOFRAN [Concomitant]
     Dosage: UNK
  5. KAYEXALATE [Concomitant]
     Dosage: UNK
  6. ALBUMIN [Concomitant]
     Dosage: UNK
  7. MANNITOL [Concomitant]
     Dosage: UNK
  8. NORMAL SALINE [Concomitant]
     Dosage: UNK

REACTIONS (1)
  - Renal impairment [Recovered/Resolved]
